FAERS Safety Report 7093427-3 (Version None)
Quarter: 2010Q4

REPORT INFORMATION
  Report Type: 
  Country: None (occurrence: None)
  Receive Date: 20101110
  Receipt Date: 20101101
  Transmission Date: 20110411
  Serious: Yes (Hospitalization)
  Sender: FDA-Public Use
  Company Number: GB-MILLENNIUM PHARMACEUTICALS, INC.-2009-02482

PATIENT

DRUGS (13)
  1. VELCADE [Suspect]
     Indication: MANTLE CELL LYMPHOMA
     Dosage: 3 MG, UNK
     Route: 042
     Dates: start: 20081215
  2. CYCLOPHOSPHAMIDE [Suspect]
     Indication: MANTLE CELL LYMPHOMA
     Dosage: 1400 MG, UNK
     Route: 042
     Dates: start: 20081215
  3. DOXORUBICIN [Suspect]
     Indication: MANTLE CELL LYMPHOMA
     Dosage: 95 MG, UNK
     Route: 042
     Dates: start: 20081215
  4. VINCRISTINE [Suspect]
     Indication: MANTLE CELL LYMPHOMA
     Dosage: 2 MG, UNK
     Route: 042
     Dates: start: 20081215
  5. PREDNISONE [Suspect]
     Indication: MANTLE CELL LYMPHOMA
     Dosage: 100 MG, UNK
     Route: 048
     Dates: start: 20081215
  6. METFORMIN HCL [Concomitant]
     Indication: TYPE 2 DIABETES MELLITUS
     Dosage: 500 MG, BID
     Route: 048
     Dates: start: 20040908
  7. CANDESARTAN CILEXETIL [Concomitant]
     Indication: HYPERTENSION
     Dosage: 2 MG, QD
     Route: 048
  8. FLUVASTATIN [Concomitant]
     Indication: HYPERTENSION
     Dosage: 40 MG, QD
     Route: 048
  9. ASPIRIN [Concomitant]
     Indication: HYPERTENSION
     Dosage: 75 MG, QD
     Route: 048
  10. CETRIZINE [Concomitant]
     Indication: HYPERSENSITIVITY
     Dosage: 10 MG, QD
     Route: 048
  11. CROMOGLICIC ACID [Concomitant]
     Indication: CATARACT
     Dosage: UNK
     Route: 047
  12. CROMOGLICIC ACID [Concomitant]
     Indication: DIABETIC RETINOPATHY
  13. ACYCLOVIR [Concomitant]
     Indication: PROPHYLAXIS
     Dosage: 400 MG, BID
     Route: 048
     Dates: start: 20090417

REACTIONS (3)
  - NEUTROPENIC SEPSIS [None]
  - OEDEMA PERIPHERAL [None]
  - PYREXIA [None]
